FAERS Safety Report 5748125-2 (Version None)
Quarter: 2008Q2

REPORT INFORMATION
  Report Type: 
  Country: None (occurrence: None)
  Receive Date: 20080523
  Receipt Date: 20080519
  Transmission Date: 20081010
  Serious: Yes (Other)
  Sender: FDA-Public Use
  Company Number: US-BOEHRINGER INGELHEIM GMBH, GERMANY-2008-BP-07959RO

PATIENT
  Age: 50 Year
  Sex: Female

DRUGS (5)
  1. MERCAPTOPURINE [Suspect]
     Indication: COLITIS ULCERATIVE
  2. PREDNISONE TAB [Suspect]
     Indication: INFLAMMATORY BOWEL DISEASE
  3. PREDNISONE TAB [Suspect]
     Indication: ARTHRALGIA
  4. METRONIDAZOLE HCL [Suspect]
     Indication: INFLAMMATORY BOWEL DISEASE
  5. MESALAMINE [Suspect]
     Indication: INFLAMMATORY BOWEL DISEASE

REACTIONS (6)
  - ANAEMIA [None]
  - ANOGENITAL DYSPLASIA [None]
  - ANOGENITAL WARTS [None]
  - DYSPLASIA [None]
  - HUMAN PAPILLOMA VIRUS TEST POSITIVE [None]
  - PROCTITIS [None]
